FAERS Safety Report 7197686-8 (Version None)
Quarter: 2010Q4

REPORT INFORMATION
  Report Type: 
  Country: None (occurrence: None)
  Receive Date: 20101227
  Receipt Date: 20101206
  Transmission Date: 20110411
  Serious: No
  Sender: FDA-Public Use
  Company Number: US-B.I. PHARMACEUTICALS,INC./RIDGEFIELD-2010-BP-13952BP

PATIENT
  Sex: Female

DRUGS (12)
  1. PRADAXA [Suspect]
     Indication: CARDIAC FAILURE CONGESTIVE
     Dosage: 300 MG
     Route: 048
     Dates: start: 20101130
  2. PRADAXA [Suspect]
     Indication: ATRIAL FIBRILLATION
  3. BETAPACE [Concomitant]
     Indication: ATRIAL FIBRILLATION
     Dosage: 120 MG
     Route: 048
  4. LASIX [Concomitant]
     Indication: CARDIAC FAILURE CONGESTIVE
     Dosage: 40 MG
     Route: 048
     Dates: start: 20090101
  5. LISINOPRIL [Concomitant]
     Indication: HYPERTENSION
     Dosage: 10 MG
     Route: 048
     Dates: start: 20080101
  6. TOPROL-XL [Concomitant]
     Indication: ATRIAL FIBRILLATION
     Dosage: 50 MG
     Route: 048
     Dates: start: 20080101
  7. TOPROL-XL [Concomitant]
     Indication: CARDIAC FAILURE CONGESTIVE
  8. KLOR-CON [Concomitant]
     Indication: CARDIAC FAILURE CONGESTIVE
     Dosage: 10 MEQ
     Route: 048
     Dates: start: 20080101
  9. ZOCOR [Concomitant]
     Indication: BLOOD CHOLESTEROL INCREASED
     Dosage: 20 MG
     Route: 048
     Dates: start: 20080101
  10. BOCALCROL [Concomitant]
     Indication: OSTEOPOROSIS
     Dosage: 0.25 MCG
     Route: 048
     Dates: start: 20080101
  11. DILTIAZEM [Concomitant]
     Indication: RECTAL FISSURE
     Route: 061
     Dates: start: 20101129
  12. BETHANE [Concomitant]
     Indication: RECTAL FISSURE
     Route: 061
     Dates: start: 20101129

REACTIONS (4)
  - DIZZINESS [None]
  - DYSPNOEA [None]
  - OROPHARYNGEAL PAIN [None]
  - PAIN IN JAW [None]
